FAERS Safety Report 5179737-5 (Version None)
Quarter: 2006Q4

REPORT INFORMATION
  Report Type: 
  Country: None (occurrence: None)
  Receive Date: 20061211
  Receipt Date: 20061127
  Transmission Date: 20070319
  Serious: Yes (Other)
  Sender: FDA-Public Use
  Company Number: 2006147084

PATIENT
  Age: 88 Year
  Sex: Female
  Weight: 95.709 kg

DRUGS (13)
  1. LYRICA [Suspect]
     Indication: COMPRESSION FRACTURE
  2. LYRICA [Suspect]
     Indication: CONVULSION
  3. TRAMADOL HCL [Suspect]
     Indication: OSTEOARTHRITIS
     Dosage: 100 MG (1 D)
     Dates: start: 20060928, end: 20061010
  4. RISPERDAL [Concomitant]
  5. CYMBALTA [Concomitant]
  6. ALLEGRA [Concomitant]
  7. PLENDIL [Concomitant]
  8. NAMENDA [Concomitant]
  9. TYLENOL [Concomitant]
  10. PRILOSEC [Concomitant]
  11. POTASSIUM CHLORIDE [Concomitant]
  12. MAGNESIUM (MAGNESIUM) [Concomitant]
  13. PRAVACHOL [Concomitant]

REACTIONS (2)
  - CONVULSION [None]
  - DRUG INTERACTION [None]
